FAERS Safety Report 15164072 (Version 1)
Quarter: 2018Q3

REPORT INFORMATION
  Report Type: Spontaneous
  Country: TR (occurrence: TR)
  Receive Date: 20180719
  Receipt Date: 20180719
  Transmission Date: 20181010
  Serious: Yes (Hospitalization, Other)
  Sender: FDA-Public Use
  Company Number: TR-ROCHE-2156824

PATIENT
  Age: 30 Year
  Sex: Male

DRUGS (4)
  1. METHYLPREDNISOLONE. [Suspect]
     Active Substance: METHYLPREDNISOLONE
     Dosage: (AFTER OMALIZUMAB)
     Route: 048
  2. METHYLPREDNISOLONE. [Suspect]
     Active Substance: METHYLPREDNISOLONE
     Indication: ASTHMA
     Dosage: (BEFORE OMALIZUMAB)
     Route: 048
  3. XOLAIR [Suspect]
     Active Substance: OMALIZUMAB
     Indication: ASTHMA
     Route: 065
  4. BECLOMETHASONE [Suspect]
     Active Substance: BECLOMETHASONE
     Indication: ASTHMA
     Dosage: 2000 UGR/DAY
     Route: 055

REACTIONS (3)
  - Asthma [Not Recovered/Not Resolved]
  - Therapeutic response decreased [Unknown]
  - Pulmonary embolism [Unknown]
